FAERS Safety Report 15498769 (Version 1)
Quarter: 2018Q4

REPORT INFORMATION
  Report Type: Spontaneous
  Country: US (occurrence: US)
  Receive Date: 20181005
  Receipt Date: 20181005
  Transmission Date: 20190205
  Serious: No
  Sender: FDA-Public Use
  Company Number: None

PATIENT
  Age: 61 Year
  Sex: Male
  Weight: 120.5 kg

DRUGS (1)
  1. INTRON A [Suspect]
     Active Substance: INTERFERON ALFA-2B
     Dosage: ?          OTHER STRENGTH:273 MILLION IU;?
     Dates: end: 20130903

REACTIONS (2)
  - Toxicity to various agents [None]
  - Neutropenia [None]

NARRATIVE: CASE EVENT DATE: 20130909
